FAERS Safety Report 10099005 (Version 1)
Quarter: 2014Q2

REPORT INFORMATION
  Report Type: Spontaneous
  Country: CA (occurrence: CA)
  Receive Date: 20140423
  Receipt Date: 20140423
  Transmission Date: 20141212
  Serious: Yes (Other)
  Sender: FDA-Public Use
  Company Number: CA-PFIZER INC-2014109350

PATIENT
  Sex: Male

DRUGS (1)
  1. SOMAVERT [Suspect]
     Dosage: UNK
     Dates: start: 201308

REACTIONS (2)
  - Nephrolithiasis [Not Recovered/Not Resolved]
  - Furuncle [Not Recovered/Not Resolved]
